FAERS Safety Report 5721760-3 (Version None)
Quarter: 2008Q2

REPORT INFORMATION
  Report Type: 
  Country: None (occurrence: None)
  Receive Date: 20080429
  Receipt Date: 20070329
  Transmission Date: 20081010
  Serious: No
  Sender: FDA-Public Use
  Company Number: US-ASTRAZENECA-2007UW06404

PATIENT
  Age: 70 Year
  Sex: Female
  Weight: 81.6 kg

DRUGS (4)
  1. NEXIUM [Suspect]
     Indication: EROSIVE OESOPHAGITIS
     Dates: start: 20070101
  2. LIPITOR [Concomitant]
  3. DOCUSATE [Concomitant]
  4. SODIUM [Concomitant]

REACTIONS (3)
  - CHOKING SENSATION [None]
  - THROAT IRRITATION [None]
  - TONGUE DISORDER [None]
